FAERS Safety Report 4300128-0 (Version None)
Quarter: 2004Q1

REPORT INFORMATION
  Report Type: 
  Country: None (occurrence: None)
  Receive Date: 20040218
  Receipt Date: 20040204
  Transmission Date: 20041129
  Serious: Yes (Hospitalization)
  Sender: FDA-Public Use
  Company Number: EM2003-0431

PATIENT
  Age: 72 Year
  Sex: Male
  Weight: 72 kg

DRUGS (14)
  1. PROLEUKIN [Suspect]
     Indication: MALIGNANT MELANOMA
     Dosage: 9 MIU/M2 BID, DAYS 1-2, WK 1 + 3, SUBCUTAN.; 2 MIU/M2 BID, DAYS 1-5, WK 2+4, SUBCUTAN
     Route: 058
     Dates: start: 20030917
  2. PROLEUKIN [Suspect]
     Indication: MALIGNANT MELANOMA
     Dosage: 9 MIU/M2 BID, DAYS 1-2, WK 1 + 3, SUBCUTAN.; 2 MIU/M2 BID, DAYS 1-5, WK 2+4, SUBCUTAN
     Route: 058
     Dates: start: 20030919
  3. CEPLENE (HISTAMINE DIHYDOCHLORIDE) [Suspect]
     Indication: MALIGNANT MELANOMA
     Dosage: 1 MG BID, DAYS 1-5, WKS 1-4, SUBCUTAN
     Route: 058
     Dates: start: 20030917
  4. PHENPROCOUMON (PHENPROCOUMON) [Concomitant]
  5. TRAMADOLOL (TRAMADOLOL) [Concomitant]
  6. IBUPROFEN [Concomitant]
  7. ENALAPRIL MALEATE [Concomitant]
  8. VERAPAMIL [Concomitant]
  9. HYDROCHLOROTHIAZIDE [Concomitant]
  10. CLODRONIC ACID (CLODONIC ACID) [Concomitant]
  11. POTASSIUM (POTASSIUM) [Concomitant]
  12. METAMIZOLE (METAMIZOLE) [Concomitant]
  13. FENTANYL [Concomitant]
  14. METOCLOPRAMIDE [Concomitant]

REACTIONS (4)
  - CHEST PAIN [None]
  - COUGH [None]
  - MALIGNANT MELANOMA [None]
  - MALIGNANT NEOPLASM PROGRESSION [None]
